FAERS Safety Report 13590420 (Version 1)
Quarter: 2017Q2

REPORT INFORMATION
  Report Type: Spontaneous
  Country: US (occurrence: US)
  Receive Date: 20170529
  Receipt Date: 20170529
  Transmission Date: 20170830
  Serious: No
  Sender: FDA-Public Use
  Company Number: None

PATIENT
  Age: 54 Year
  Sex: Male
  Weight: 167.4 kg

DRUGS (9)
  1. OXYGEN. [Concomitant]
     Active Substance: OXYGEN
  2. BETAMETHASONE. [Concomitant]
     Active Substance: BETAMETHASONE
  3. TRIANICINOLOLONE [Concomitant]
  4. ENALPRIL [Concomitant]
  5. CPAP [Concomitant]
     Active Substance: DEVICE
  6. MONTELUKAST [Concomitant]
     Active Substance: MONTELUKAST SODIUM
  7. MUPIROCIN. [Concomitant]
     Active Substance: MUPIROCIN
  8. FUROSEMIDE ORAL SOLUTION, 10 MG/ML [Suspect]
     Active Substance: FUROSEMIDE
     Indication: METABOLIC SYNDROME
     Dosage: .5 .25 SMALLEST PILL; AT BEDTIME SUBLINGUAL?
     Route: 060
  9. METFORMIN [Concomitant]
     Active Substance: METFORMIN HYDROCHLORIDE

REACTIONS (2)
  - Pancreatitis [None]
  - Dehydration [None]

NARRATIVE: CASE EVENT DATE: 20170526
